FAERS Safety Report 8800243 (Version 1)
Quarter: 2012Q4

REPORT INFORMATION
  Report Type: 
  Country: US (occurrence: US)
  Receive Date: 20120921
  Receipt Date: 20120921
  Transmission Date: 20130627
  Serious: Yes (Death)
  Sender: FDA-Public Use
  Company Number: PHEH2012US018358

PATIENT
  Age: 66 Year
  Sex: Female
  Weight: 52.16 kg

DRUGS (11)
  1. GLEEVEC [Suspect]
     Indication: LEUKAEMIA
     Dosage: 200 mg, BID
     Route: 048
     Dates: start: 20120320, end: 20120917
  2. AMLODIPINE BESYLATE [Concomitant]
     Dosage: UNK UKN, UNK
  3. METFORMIN HYDROCHLORIDE [Concomitant]
     Dosage: UNK UKN, UNK
  4. METOPROLOL [Concomitant]
     Dosage: UNK UKN, UNK
  5. HYDROCHLOROTHIAZIDE [Concomitant]
     Dosage: UNK UKN, UNK
  6. COZAAR [Concomitant]
     Dosage: UNK UKN, UNK
  7. LEVOTHYROXINE SODIUM [Concomitant]
     Dosage: UNK UKN, UNK
  8. DRONABINOL [Concomitant]
     Dosage: UNK UKN, UNK
  9. NEXIUM [Concomitant]
     Dosage: UNK UKN, UNK
  10. LIPITOR [Concomitant]
     Dosage: UNK UKN, UNK
  11. VITAMIN E [Concomitant]
     Dosage: UNK UKN, UNK

REACTIONS (1)
  - Death [Fatal]
